FAERS Safety Report 9412280 (Version 2)
Quarter: 2013Q3

REPORT INFORMATION
  Report Type: Spontaneous
  Country: DE (occurrence: DE)
  Receive Date: 20130722
  Receipt Date: 20130815
  Transmission Date: 20140515
  Serious: Yes (Hospitalization)
  Sender: FDA-Public Use
  Company Number: DE-ROCHE-1250517

PATIENT
  Sex: Female

DRUGS (4)
  1. BONVIVA [Suspect]
     Indication: PRODUCT USED FOR UNKNOWN INDICATION
     Route: 048
     Dates: start: 20130606, end: 20130606
  2. IRENAT [Concomitant]
     Indication: HYPERTHYROIDISM
  3. VOTUM PLUS [Concomitant]
     Indication: HYPERTENSION
  4. MAXALT LINGUA [Concomitant]

REACTIONS (1)
  - Venous thrombosis [Recovering/Resolving]
